FAERS Safety Report 24404310 (Version 2)
Quarter: 2024Q4

REPORT INFORMATION
  Report Type: Spontaneous
  Country: US (occurrence: US)
  Receive Date: 20241007
  Receipt Date: 20241114
  Transmission Date: 20250114
  Serious: Yes (Death, Other)
  Sender: Vantive US Healthcare
  Company Number: US-VANTIVE-2024VAN020223

PATIENT
  Sex: Male

DRUGS (2)
  1. DIANEAL [Suspect]
     Active Substance: CALCIUM CHLORIDE\DEXTROSE\MAGNESIUM CHLORIDE\SODIUM CHLORIDE\SODIUM LACTATE
     Indication: End stage renal disease
     Dosage: VIA CYCLER
     Route: 033
     Dates: end: 202409
  2. EXTRANEAL [Suspect]
     Active Substance: CALCIUM CHLORIDE\ICODEXTRIN\MAGNESIUM CHLORIDE\SODIUM CHLORIDE\SODIUM LACTATE
     Dosage: VIA CYCLER
     Route: 033
     Dates: end: 202409

REACTIONS (1)
  - Death [Fatal]
